FAERS Safety Report 8577142-2 (Version None)
Quarter: 2012Q3

REPORT INFORMATION
  Report Type: 
  Country: None (occurrence: None)
  Receive Date: 20120807
  Receipt Date: 20120731
  Transmission Date: 20120928
  Serious: Yes (Life-Threatening)
  Sender: FDA-Public Use
  Company Number: IT-TEVA-351289ISR

PATIENT
  Sex: Male

DRUGS (3)
  1. OXALIPLATIN [Suspect]
     Indication: COLON CANCER METASTATIC
     Dosage: 163 MILLIGRAM DAILY;
     Route: 042
     Dates: start: 20120124, end: 20120601
  2. AVASTIN [Suspect]
     Indication: COLON CANCER METASTATIC
     Dosage: 375 MILLIGRAM DAILY;
     Route: 042
     Dates: start: 20120124, end: 20120601
  3. FLUOROURACIL [Suspect]
     Indication: COLON CANCER METASTATIC
     Dosage: 5376 MILLIGRAM DAILY;
     Route: 042
     Dates: start: 20120124, end: 20120601

REACTIONS (1)
  - MYOCARDIAL INFARCTION [None]
